FAERS Safety Report 10046948 (Version 2)
Quarter: 2014Q3

REPORT INFORMATION
  Report Type: Report from Study
  Country: US (occurrence: US)
  Receive Date: 20140331
  Receipt Date: 20140706
  Transmission Date: 20150326
  Serious: Yes (Other)
  Sender: FDA-Public Use
  Company Number: US-ALEXION-A201400933

PATIENT

DRUGS (1)
  1. SOLIRIS [Suspect]
     Active Substance: ECULIZUMAB
     Indication: HAEMOLYTIC URAEMIC SYNDROME
     Dosage: 1200 MG, UNK
     Route: 042
     Dates: start: 20120919

REACTIONS (4)
  - Fatigue [Not Recovered/Not Resolved]
  - Catheter placement [Unknown]
  - Hypersomnia [Not Recovered/Not Resolved]
  - Multi-organ disorder [Unknown]

NARRATIVE: CASE EVENT DATE: 20120919
